FAERS Safety Report 6639200-9 (Version None)
Quarter: 2010Q1

REPORT INFORMATION
  Report Type: 
  Country: None (occurrence: None)
  Receive Date: 20100312
  Receipt Date: 20100301
  Transmission Date: 20100710
  Serious: Yes (Death)
  Sender: FDA-Public Use
  Company Number: WAES 1003USA01317

PATIENT
  Sex: 0

DRUGS (6)
  1. DECADRON [Suspect]
     Dosage: 40 MG DAILY PO
     Route: 048
  2. BORTEZOMIB [Suspect]
     Dosage: 1.3 MG/M2
  3. DOXORUBICIN HCL [Suspect]
     Dosage: 30 MG/M[2]
  4. MELPHALAN HYDROCHLORIDE [Suspect]
     Dosage: 100 MG/M [2]
  5. LENALIDOMIDE [Suspect]
     Dosage: 10 MG DAILY
  6. PREDNISONE [Suspect]

REACTIONS (17)
  - ANAEMIA [None]
  - CONSTIPATION [None]
  - DIVERTICULITIS [None]
  - DRUG TOXICITY [None]
  - EMBOLISM [None]
  - FATIGUE [None]
  - HAEMORRHAGE [None]
  - INFECTION [None]
  - NERVOUS SYSTEM DISORDER [None]
  - NEUROPATHY PERIPHERAL [None]
  - NEUTROPENIA [None]
  - PNEUMONIA [None]
  - PULMONARY EMBOLISM [None]
  - PYREXIA [None]
  - SEPSIS [None]
  - SEPTIC SHOCK [None]
  - THROMBOCYTOPENIA [None]
